FAERS Safety Report 16802859 (Version 1)
Quarter: 2019Q3

REPORT INFORMATION
  Report Type: Spontaneous
  Country: US (occurrence: US)
  Receive Date: 20190913
  Receipt Date: 20190913
  Transmission Date: 20191005
  Serious: No
  Sender: FDA-Public Use
  Company Number: US-LUPIN PHARMACEUTICALS INC.-2019-05673

PATIENT
  Age: 68 Year
  Sex: Female
  Weight: 75.74 kg

DRUGS (1)
  1. PAROXETINE HYDROCHLORIDE CONTROLLED-RELEASE TABLETS USP, 25 MG [Suspect]
     Active Substance: PAROXETINE HYDROCHLORIDE
     Indication: DEPRESSION
     Dosage: 25 MILLIGRAM, QD (AT MORNING)
     Route: 048
     Dates: start: 20190626

REACTIONS (4)
  - Hypersomnia [Recovering/Resolving]
  - Crying [Recovering/Resolving]
  - Drug ineffective [Unknown]
  - Allergic reaction to excipient [Unknown]

NARRATIVE: CASE EVENT DATE: 20190703
